FAERS Safety Report 7956882-X (Version None)
Quarter: 2011Q4

REPORT INFORMATION
  Report Type: 
  Country: None (occurrence: None)
  Receive Date: 20111205
  Receipt Date: 20111019
  Transmission Date: 20120403
  Serious: No
  Sender: FDA-Public Use
  Company Number: US-BAYER-2011-102144

PATIENT
  Age: 77 Year
  Sex: Male
  Weight: 104 kg

DRUGS (5)
  1. SAW PALMETTO [Concomitant]
  2. ASPIRIN LOW [Concomitant]
  3. LOVAZA [Concomitant]
  4. ALEVE (CAPLET) [Suspect]
     Indication: BACK PAIN
     Dosage: 2 DF, QD
     Dates: start: 20111019
  5. LOSARTAN POTASSIUM [Concomitant]

REACTIONS (1)
  - BACK PAIN [None]
